FAERS Safety Report 7137973-2 (Version None)
Quarter: 2010Q4

REPORT INFORMATION
  Report Type: 
  Country: None (occurrence: None)
  Receive Date: 20101103
  Receipt Date: 20100816
  Transmission Date: 20110411
  Serious: Yes (Hospitalization)
  Sender: FDA-Public Use
  Company Number: 2010S1001194

PATIENT
  Age: 83 Year
  Sex: Male
  Weight: 80 kg

DRUGS (9)
  1. CUBICIN [Suspect]
     Indication: CELLULITIS
     Dosage: 6.25 MG/KG; Q24H; IV
     Route: 042
     Dates: start: 20100804, end: 20100813
  2. VANCOMYCIN [Concomitant]
  3. APRESOLINE [Concomitant]
  4. ASPIRIN [Concomitant]
  5. COREG [Concomitant]
  6. ROSUVASTATIN [Concomitant]
  7. MORPHINE [Concomitant]
  8. LOVENOX [Concomitant]
  9. AVODART [Concomitant]

REACTIONS (2)
  - BLOOD CREATINE PHOSPHOKINASE INCREASED [None]
  - RHABDOMYOLYSIS [None]
